FAERS Safety Report 4943295-8 (Version None)
Quarter: 2006Q1

REPORT INFORMATION
  Report Type: 
  Country: None (occurrence: None)
  Receive Date: 20060223
  Receipt Date: 20060208
  Transmission Date: 20060701
  Serious: Yes (Hospitalization)
  Sender: FDA-Public Use
  Company Number: WSDF_00519

PATIENT
  Age: 40 Year
  Sex: Male

DRUGS (2)
  1. WINRHO SDF [Suspect]
     Dosage: 50 MCG/KG
     Dates: start: 20051201
  2. WINRHO SDF [Suspect]

REACTIONS (9)
  - BACK PAIN [None]
  - CHILLS [None]
  - HAEMATURIA [None]
  - HEADACHE [None]
  - INTRAVASCULAR HAEMOLYSIS [None]
  - PLATELET COUNT DECREASED [None]
  - PLATELET COUNT INCREASED [None]
  - PYREXIA [None]
  - SPLENOMEGALY [None]
